FAERS Safety Report 8437953-0 (Version None)
Quarter: 2012Q2

REPORT INFORMATION
  Report Type: 
  Country: None (occurrence: None)
  Receive Date: 20120614
  Receipt Date: 20120605
  Transmission Date: 20120825
  Serious: No
  Sender: FDA-Public Use
  Company Number: US-AMGEN-USASP2012033320

PATIENT
  Age: 69 Year
  Sex: Female
  Weight: 62.585 kg

DRUGS (6)
  1. ALENDRONATE SODIUM [Concomitant]
     Indication: OSTEOPOROSIS
     Dosage: UNK
  2. VITAMIN D [Concomitant]
  3. WELLBUTRIN [Concomitant]
  4. PROLIA [Suspect]
     Indication: OSTEOPOROSIS
     Dosage: 60 MG, Q6MO
     Dates: start: 20120516
  5. NAPRELAN [Concomitant]
  6. CALCIUM [Concomitant]

REACTIONS (3)
  - CYSTITIS [None]
  - ORTHOSTATIC HYPERTENSION [None]
  - VERTIGO [None]
